FAERS Safety Report 5326025-X (Version None)
Quarter: 2007Q2

REPORT INFORMATION
  Report Type: 
  Country: None (occurrence: None)
  Receive Date: 20070516
  Receipt Date: 20070512
  Transmission Date: 20071010
  Serious: Yes (Other)
  Sender: FDA-Public Use
  Company Number: CA-BRISTOL-MYERS SQUIBB COMPANY-13778162

PATIENT
  Age: 58 Year
  Sex: Female
  Weight: 73 kg

DRUGS (3)
  1. CETUXIMAB [Suspect]
     Indication: COLON CANCER
     Dates: start: 20070415
  2. FLUOROURACIL [Suspect]
     Indication: COLON CANCER
     Dates: start: 20070415
  3. OXALIPLATIN [Suspect]
     Indication: COLON CANCER
     Dates: start: 20070415

REACTIONS (3)
  - BLOOD MAGNESIUM DECREASED [None]
  - DYSPEPSIA [None]
  - HYPOMAGNESAEMIA [None]
